FAERS Safety Report 4768787-6 (Version None)
Quarter: 2005Q3

REPORT INFORMATION
  Report Type: 
  Country: None (occurrence: None)
  Receive Date: 20050914
  Receipt Date: 20050907
  Transmission Date: 20060218
  Serious: Yes (Hospitalization)
  Sender: FDA-Public Use
  Company Number: FR-BRISTOL-MYERS SQUIBB COMPANY-13102389

PATIENT
  Sex: Male

DRUGS (1)
  1. REYATAZ [Suspect]
     Route: 048

REACTIONS (2)
  - NEPHROLITHIASIS [None]
  - RENAL COLIC [None]
